FAERS Safety Report 4648401-0 (Version None)
Quarter: 2005Q2

REPORT INFORMATION
  Report Type: 
  Country: None (occurrence: None)
  Receive Date: 20050427
  Receipt Date: 20050415
  Transmission Date: 20051028
  Serious: Yes (Other)
  Sender: FDA-Public Use
  Company Number: HQWYE084618APR05

PATIENT
  Age: 70 Year
  Sex: Male

DRUGS (3)
  1. AMIODARONE HCL [Suspect]
     Dosage: 300 MG 1X PER 1 DAY, INTRAVENOUS
     Route: 042
     Dates: start: 19990904, end: 19990904
  2. SOTALOL HCL [Concomitant]
  3. ASPIRIN [Concomitant]

REACTIONS (4)
  - ANGIONEUROTIC OEDEMA [None]
  - BACK PAIN [None]
  - CHEST DISCOMFORT [None]
  - HEARING IMPAIRED [None]
